FAERS Safety Report 19353290 (Version 1)
Quarter: 2021Q2

REPORT INFORMATION
  Report Type: Spontaneous
  Country: FR (occurrence: FR)
  Receive Date: 20210531
  Receipt Date: 20210531
  Transmission Date: 20210717
  Serious: Yes (Hospitalization)
  Sender: FDA-Public Use
  Company Number: NVSC2021FR114096

PATIENT
  Age: 4 Year
  Sex: Male
  Weight: 25 kg

DRUGS (5)
  1. GLIVEC [Suspect]
     Active Substance: IMATINIB MESYLATE
     Indication: T-CELL TYPE ACUTE LEUKAEMIA
     Dosage: 3.5 DF, QD
     Route: 048
     Dates: start: 20210307, end: 20210401
  2. METHOTREXATE BIODIM [Suspect]
     Active Substance: METHOTREXATE
     Indication: T-CELL TYPE ACUTE LEUKAEMIA
     Dosage: 12 MG, CYCLIC
     Route: 037
     Dates: start: 20210310, end: 20210331
  3. OMEPRAZOL ARROW [Suspect]
     Active Substance: OMEPRAZOLE
     Indication: T-CELL TYPE ACUTE LEUKAEMIA
     Dosage: 20 MG, QD
     Route: 042
     Dates: start: 20210329, end: 20210405
  4. SOLUPRED (PREDNISOLONE METASULFOBENZOATE SODIUM) [Suspect]
     Active Substance: PREDNISOLONE SODIUM METAZOATE
     Indication: T-CELL TYPE ACUTE LEUKAEMIA
     Dosage: 60 MG, QD
     Route: 048
     Dates: start: 20210326, end: 20210406
  5. VINCRISTINE HOSPIRA [Suspect]
     Active Substance: VINCRISTINE
     Indication: T-CELL TYPE ACUTE LEUKAEMIA
     Dosage: 1.4 MG, CYCLIC
     Route: 042
     Dates: start: 20210309, end: 20210330

REACTIONS (2)
  - Posterior reversible encephalopathy syndrome [Recovered/Resolved]
  - Hyponatraemia [Recovered/Resolved]

NARRATIVE: CASE EVENT DATE: 20210405
